FAERS Safety Report 23093388 (Version 1)
Quarter: 2023Q4

REPORT INFORMATION
  Report Type: Spontaneous
  Country: RO (occurrence: RO)
  Receive Date: 20231022
  Receipt Date: 20231022
  Transmission Date: 20240110
  Serious: Yes (Other)
  Sender: FDA-Public Use
  Company Number: RO-AMGEN-ROUSP2023103069

PATIENT
  Age: 26 Year
  Sex: Male

DRUGS (6)
  1. PEGFILGRASTIM [Suspect]
     Active Substance: PEGFILGRASTIM
     Indication: Prophylaxis
     Dosage: UNK
     Route: 065
     Dates: start: 20230128
  2. CYTARABINE [Concomitant]
     Active Substance: CYTARABINE
     Indication: Product used for unknown indication
     Dosage: 336 MILLIGRAM, Q12H
     Route: 065
  3. ETOPOSIDE [Concomitant]
     Active Substance: ETOPOSIDE
     Indication: Product used for unknown indication
     Dosage: 168 MILLIGRAM, Q12H BETWEEN 21-JAN-2023 -24.JAN.2023
     Route: 065
  4. FOTEMUSTINE [Concomitant]
     Active Substance: FOTEMUSTINE
     Indication: Hodgkin^s disease
     Dosage: 504 MILLIGRAM
     Route: 065
     Dates: start: 20230120
  5. MELPHALAN [Concomitant]
     Active Substance: MELPHALAN
     Indication: Product used for unknown indication
     Dosage: 235.2 MILLIGRAM
     Route: 065
     Dates: start: 20230125
  6. PEMBROLIZUMAB [Concomitant]
     Active Substance: PEMBROLIZUMAB
     Indication: Product used for unknown indication
     Dosage: UNK (WITH 9 INFUSIONS)
     Route: 065

REACTIONS (4)
  - Gastrointestinal inflammation [Unknown]
  - Bone marrow failure [Unknown]
  - Hyperthermia [Recovered/Resolved]
  - Escherichia test positive [Unknown]

NARRATIVE: CASE EVENT DATE: 20230130
